FAERS Safety Report 7660355-1 (Version None)
Quarter: 2011Q3

REPORT INFORMATION
  Report Type: 
  Country: None (occurrence: None)
  Receive Date: 20110805
  Receipt Date: 20110802
  Transmission Date: 20111222
  Serious: Yes (Death, Hospitalization)
  Sender: FDA-Public Use
  Company Number: US-US-EMD SERONO, INC.-7072405

PATIENT
  Sex: Female
  Weight: 53 kg

DRUGS (7)
  1. REBIF [Suspect]
     Indication: PROGRESSIVE RELAPSING MULTIPLE SCLEROSIS
     Route: 058
     Dates: start: 20110209
  2. REBIF [Suspect]
     Route: 058
     Dates: start: 20110524
  3. AMPYRA ER [Concomitant]
     Indication: MULTIPLE SCLEROSIS
     Dates: start: 20110504, end: 20110601
  4. FIORICET/CAFFEINE/CODEINE [Concomitant]
     Indication: HEADACHE
     Dates: start: 20090212, end: 20110601
  5. PAIN MEDICATION [Concomitant]
     Indication: PAIN
  6. BACLOFEN [Concomitant]
     Indication: MUSCLE SPASMS
     Dates: start: 20100308, end: 20110601
  7. XANAX [Concomitant]
     Indication: DEPRESSION
     Dates: start: 20110509, end: 20110601

REACTIONS (5)
  - CARDIO-RESPIRATORY ARREST [None]
  - HYPOXIC-ISCHAEMIC ENCEPHALOPATHY [None]
  - CEREBELLAR INFARCTION [None]
  - FLEA INFESTATION [None]
  - RESPIRATORY FAILURE [None]
